FAERS Safety Report 5509656-3 (Version None)
Quarter: 2007Q4

REPORT INFORMATION
  Report Type: 
  Country: None (occurrence: None)
  Receive Date: 20071108
  Receipt Date: 20071031
  Transmission Date: 20080405
  Serious: Yes (Other)
  Sender: FDA-Public Use
  Company Number: PHBS2007BR18254

PATIENT
  Age: 63 Year
  Sex: Male

DRUGS (3)
  1. PANTANOL [Concomitant]
     Indication: STOMACH DISCOMFORT
     Dosage: UNK, QD
     Route: 048
  2. DIOVAN [Suspect]
     Indication: HYPERTENSION
     Dosage: 80 MG, QD
     Route: 048
     Dates: start: 20040101
  3. DIOVAN [Suspect]
     Dosage: 40 MG/DAY
     Route: 048

REACTIONS (3)
  - CHOLECYSTITIS INFECTIVE [None]
  - GALLBLADDER OPERATION [None]
  - HYPOTENSION [None]
